FAERS Safety Report 8947578 (Version 2)
Quarter: 2012Q4

REPORT INFORMATION
  Report Type: 
  Country: JP (occurrence: JP)
  Receive Date: 20121204
  Receipt Date: 20121205
  Transmission Date: 20130627
  Serious: Yes (Other)
  Sender: FDA-Public Use
  Company Number: JP-ROCHE-1163413

PATIENT
  Age: 77 Year
  Sex: Female

DRUGS (4)
  1. PEGASYS [Suspect]
     Indication: CHRONIC HEPATITIS C
     Dosage: Dosage is uncertain.
     Route: 058
  2. COPEGUS [Suspect]
     Indication: CHRONIC HEPATITIS C
     Dosage: Dosage is uncertain.
     Route: 048
  3. COPEGUS [Suspect]
     Indication: CHRONIC HEPATITIS C
     Route: 048
  4. TELAPREVIR [Suspect]
     Indication: CHRONIC HEPATITIS C
     Dosage: Dosage is uncertain.
     Route: 065

REACTIONS (3)
  - Renal impairment [Recovered/Resolved]
  - Headache [Unknown]
  - Pyrexia [Unknown]
